FAERS Safety Report 5879978-5 (Version None)
Quarter: 2008Q3

REPORT INFORMATION
  Report Type: 
  Country: None (occurrence: None)
  Receive Date: 20080912
  Receipt Date: 20080903
  Transmission Date: 20090109
  Serious: Yes (Life-Threatening, Hospitalization)
  Sender: FDA-Public Use
  Company Number: US-ELI_LILLY_AND_COMPANY-US200809000901

PATIENT
  Sex: Male
  Weight: 98.866 kg

DRUGS (2)
  1. BYETTA [Suspect]
     Indication: TYPE 2 DIABETES MELLITUS
     Dosage: 5 UG, 2/D
     Route: 058
     Dates: start: 20080301, end: 20080401
  2. BYETTA [Suspect]
     Dosage: 10 UG, 2/D
     Route: 058
     Dates: start: 20080401

REACTIONS (4)
  - CARDIAC FAILURE CONGESTIVE [None]
  - DYSPNOEA [None]
  - PNEUMONIA [None]
  - URINARY INCONTINENCE [None]
